FAERS Safety Report 11524506 (Version 1)
Quarter: 2015Q3

REPORT INFORMATION
  Report Type: Spontaneous
  Country: US (occurrence: US)
  Receive Date: 20150903
  Receipt Date: 20150903
  Transmission Date: 20151125
  Serious: No
  Sender: FDA-Public Use
  Company Number: US-ELI_LILLY_AND_COMPANY-US201001005534

PATIENT
  Sex: Female

DRUGS (6)
  1. COLCHICINE. [Concomitant]
     Active Substance: COLCHICINE
     Dosage: 6 MG, 2/D
  2. HUMALOG [Suspect]
     Active Substance: INSULIN LISPRO
     Dosage: 5 U, OTHER
  3. HUMALOG [Suspect]
     Active Substance: INSULIN LISPRO
     Dosage: 12 U, OTHER
  4. HUMALOG [Suspect]
     Active Substance: INSULIN LISPRO
     Indication: DIABETES MELLITUS
     Dosage: 7 U, EACH MORNING
  5. LANTUS [Concomitant]
     Active Substance: INSULIN GLARGINE
     Dosage: 24 U, EACH EVENING
     Dates: start: 2000
  6. FEBUXOSTAT. [Concomitant]
     Active Substance: FEBUXOSTAT
     Dosage: 40 MG, DAILY (1/D)
     Dates: start: 200912

REACTIONS (6)
  - Blood glucose decreased [Recovered/Resolved]
  - Gout [Recovering/Resolving]
  - Glaucoma [Not Recovered/Not Resolved]
  - Wrong technique in product usage process [Unknown]
  - Visual impairment [Not Recovered/Not Resolved]
  - Cataract [Recovered/Resolved]

NARRATIVE: CASE EVENT DATE: 2007
